FAERS Safety Report 24301369 (Version 1)
Quarter: 2024Q3

REPORT INFORMATION
  Report Type: Spontaneous
  Country: DE (occurrence: DE)
  Receive Date: 20240910
  Receipt Date: 20240910
  Transmission Date: 20241016
  Serious: Yes (Other)
  Sender: AMGEN
  Company Number: DE-AMGEN-DEUSP2024157619

PATIENT
  Age: 70 Year
  Sex: Female

DRUGS (13)
  1. PROLIA [Suspect]
     Active Substance: DENOSUMAB
     Indication: Osteoporosis postmenopausal
     Dosage: 60 MILLIGRAM, Q6MO
     Route: 058
     Dates: start: 2022, end: 2024
  2. Calcium sandoz d osteo [Concomitant]
     Dosage: (500 MG CALCIUM, 400 IU D) (1 MORNING AND 1 EVENING)
  3. SPIRIVA RESPIMAT [Concomitant]
     Active Substance: TIOTROPIUM BROMIDE
     Dosage: (2 PUFFS MORNING, RESPIRATION)
  4. FOSTER [Concomitant]
     Active Substance: BECLOMETHASONE\FORMOTEROL
     Dosage: (1 PUFFS MORNING, RESPIRATION)
  5. ALBUTEROL [Concomitant]
     Active Substance: ALBUTEROL
     Dosage: (AS REQUIRED MORNING, RESPIRATION)
  6. ACETYLCYSTEINE [Concomitant]
     Active Substance: ACETYLCYSTEINE
     Dosage: (LONG AS REQUIRED MORNING, RESPIRATION)
  7. IVABRADINE [Concomitant]
     Active Substance: IVABRADINE
     Indication: Cardiac disorder
     Dosage: 7.5 MILLIGRAM (MORNING)
  8. NEBIVOLOL [Concomitant]
     Active Substance: NEBIVOLOL
     Indication: Cardiac disorder
     Dosage: 5 MILLIGRAM (MORNING)
  9. ASCORBIC ACID\ZINC [Concomitant]
     Active Substance: ASCORBIC ACID\ZINC
     Dosage: (MIDDAY)
  10. LITHIUM OROTATE [Concomitant]
     Active Substance: LITHIUM OROTATE
     Dosage: (MIDDAY)
  11. CEFASEL NUTRI [Concomitant]
     Dosage: 200 MICROGRAM (MIDDAY)
  12. CURCUMIN [Concomitant]
     Active Substance: CURCUMIN
     Dosage: (MIDDAY)
  13. BROMELAINS [Concomitant]
     Active Substance: BROMELAINS
     Dosage: (5 DAYS/MONTH, MIDDAY)

REACTIONS (9)
  - Cauda equina syndrome [Unknown]
  - Osteochondrosis [Unknown]
  - Stomatitis [Unknown]
  - Ageusia [Unknown]
  - Anosmia [Unknown]
  - Pain in jaw [Unknown]
  - Scoliosis [Unknown]
  - Toothache [Unknown]
  - Sacroiliitis [Unknown]

NARRATIVE: CASE EVENT DATE: 20220701
